FAERS Safety Report 24346895 (Version 1)
Quarter: 2024Q3

REPORT INFORMATION
  Report Type: Spontaneous
  Country: PT (occurrence: PT)
  Receive Date: 20240921
  Receipt Date: 20240921
  Transmission Date: 20241017
  Serious: Yes (Life-Threatening, Hospitalization, Other)
  Sender: ACCORD
  Company Number: PT-Accord-446725

PATIENT
  Age: 82 Year
  Sex: Male

DRUGS (1)
  1. CAPECITABINE [Suspect]
     Active Substance: CAPECITABINE
     Indication: Adenocarcinoma of colon
     Dosage: 1ST CYCLE
     Route: 048

REACTIONS (8)
  - Febrile neutropenia [Recovering/Resolving]
  - Mucosal inflammation [Unknown]
  - Palmar-plantar erythrodysaesthesia syndrome [Unknown]
  - Acute kidney injury [Recovering/Resolving]
  - Septic shock [Unknown]
  - Diarrhoea [Unknown]
  - Asthenia [Unknown]
  - Craniocerebral injury [Unknown]
